FAERS Safety Report 6023535-7 (Version None)
Quarter: 2008Q4

REPORT INFORMATION
  Report Type: 
  Country: None (occurrence: None)
  Receive Date: 20081230
  Receipt Date: 20081220
  Transmission Date: 20090506
  Serious: Yes (Other)
  Sender: FDA-Public Use
  Company Number: PHEH2008US10862

PATIENT
  Sex: Female

DRUGS (7)
  1. RECLAST [Suspect]
     Indication: OSTEOPOROSIS
     Dosage: 5 MG, ONCE/SINGLE
     Dates: start: 20081009, end: 20081009
  2. PLAVIX [Concomitant]
  3. PRAVACHOL [Concomitant]
  4. TOPROL-XL [Concomitant]
  5. CALTRATE PLUS [Concomitant]
  6. ASPIRIN [Concomitant]
  7. TUMS [Concomitant]
     Dosage: UNK

REACTIONS (5)
  - BLOOD PRESSURE INCREASED [None]
  - CHEST DISCOMFORT [None]
  - CYANOSIS [None]
  - HYPOAESTHESIA [None]
  - PALPITATIONS [None]
